FAERS Safety Report 9336509 (Version 1)
Quarter: 2013Q2

REPORT INFORMATION
  Report Type: Spontaneous
  Country: US (occurrence: US)
  Receive Date: 20130607
  Receipt Date: 20130607
  Transmission Date: 20140414
  Serious: No
  Sender: FDA-Public Use
  Company Number: US-PFIZER INC-2013169086

PATIENT
  Age: 72 Year
  Sex: Male
  Weight: 104 kg

DRUGS (13)
  1. SOMAVERT [Suspect]
     Indication: ACROMEGALY
     Dosage: UNK
     Dates: start: 20130107
  2. LEVOTHYROXINE [Concomitant]
     Indication: THYROID DISORDER
     Dosage: 75 UG, 1X/DAY
  3. LANTUS [Concomitant]
     Dosage: 40 IU, 1X/DAY
  4. HUMALOG [Concomitant]
     Dosage: UNK
  5. CELEBREX [Concomitant]
     Dosage: 200 MG, 1X/DAY
  6. SINGULAIR [Concomitant]
     Dosage: 10 MG, 1X/DAY
  7. AMITRIPTYLINE [Concomitant]
     Dosage: 25 MG, 1X/DAY
  8. LIPITOR [Concomitant]
     Dosage: UNK
  9. AMBIEN CR [Concomitant]
     Dosage: UNK
  10. MELATONIN [Concomitant]
     Dosage: UNK
  11. LORTAB [Concomitant]
     Dosage: UNK, AS NEEDED
  12. NEURONTIN [Concomitant]
     Dosage: UNK
  13. SENNA [Concomitant]
     Dosage: UNK

REACTIONS (3)
  - Injection site mass [Not Recovered/Not Resolved]
  - Axillary mass [Not Recovered/Not Resolved]
  - Insulin-like growth factor decreased [Unknown]
